FAERS Safety Report 14174099 (Version 3)
Quarter: 2018Q1

REPORT INFORMATION
  Report Type: Spontaneous
  Country: JP (occurrence: JP)
  Receive Date: 20171109
  Receipt Date: 20180213
  Transmission Date: 20180508
  Serious: Yes (Hospitalization)
  Sender: FDA-Public Use
  Company Number: JP-ASTRAZENECA-2017SF13208

PATIENT
  Age: 84 Year
  Sex: Female

DRUGS (5)
  1. IRESSA [Suspect]
     Active Substance: GEFITINIB
     Indication: NON-SMALL CELL LUNG CANCER
     Route: 048
  2. DEXALTIN [Concomitant]
     Active Substance: DEXAMETHASONE
     Dosage: TWO TIMES A DAY, APPLIED IN THE MOUTH
     Route: 049
  3. LURICUL VG [Concomitant]
     Dosage: TWO TIMES A DAY, APPLIED TO THE ECZEMA ON THE FOREARM.
     Route: 061
  4. IRESSA [Suspect]
     Active Substance: GEFITINIB
     Indication: NON-SMALL CELL LUNG CANCER
     Route: 048
  5. IRESSA [Suspect]
     Active Substance: GEFITINIB
     Indication: NON-SMALL CELL LUNG CANCER
     Route: 048

REACTIONS (4)
  - Off label use [Recovered/Resolved]
  - Dermatitis [Recovering/Resolving]
  - Fracture [Unknown]
  - Blood potassium decreased [Unknown]

NARRATIVE: CASE EVENT DATE: 20170921
